FAERS Safety Report 19735665 (Version 1)
Quarter: 2021Q3

REPORT INFORMATION
  Report Type: Spontaneous
  Country: FR (occurrence: FR)
  Receive Date: 20210823
  Receipt Date: 20210823
  Transmission Date: 20211014
  Serious: Yes (Life-Threatening)
  Sender: FDA-Public Use
  Company Number: FR-PFIZER INC-202101045190

PATIENT
  Age: 60 Year
  Sex: Female
  Weight: 71 kg

DRUGS (7)
  1. ALPRAZOLAM. [Suspect]
     Active Substance: ALPRAZOLAM
     Dosage: 7 G
     Route: 048
     Dates: start: 20210703, end: 20210703
  2. DAFALGAN CODEINE [Suspect]
     Active Substance: ACETAMINOPHEN\CODEINE PHOSPHATE
     Dosage: 14 G
     Route: 048
     Dates: start: 20210703, end: 20210703
  3. BROMAZEPAM [Suspect]
     Active Substance: BROMAZEPAM
     Dosage: 900 MG
     Route: 048
     Dates: start: 20210703, end: 20210703
  4. ESCITALOPRAM [Suspect]
     Active Substance: ESCITALOPRAM OXALATE
     Dosage: 80 MG
     Route: 048
     Dates: start: 20210703, end: 20210703
  5. LAMICTAL [Suspect]
     Active Substance: LAMOTRIGINE
     Dosage: 9 G
     Route: 048
     Dates: start: 20210703, end: 20210703
  6. ZOLPIDEM [Suspect]
     Active Substance: ZOLPIDEM TARTRATE
     Dosage: 140 MG
     Route: 048
     Dates: start: 20210703, end: 20210703
  7. CRATAEGUS EXTRACT [Suspect]
     Active Substance: HAWTHORN LEAF WITH FLOWER
     Dosage: 400 MG
     Route: 048
     Dates: start: 20210703, end: 20210703

REACTIONS (3)
  - Coma [Recovered/Resolved]
  - Poisoning deliberate [Unknown]
  - Intentional overdose [Unknown]

NARRATIVE: CASE EVENT DATE: 20210703
